FAERS Safety Report 4341023-0 (Version None)
Quarter: 2004Q2

REPORT INFORMATION
  Report Type: 
  Country: None (occurrence: None)
  Receive Date: 20040413
  Receipt Date: 20040330
  Transmission Date: 20050107
  Serious: Yes (Hospitalization, Other)
  Sender: FDA-Public Use
  Company Number: US-JNJFOC-20040400097

PATIENT
  Age: 33 Year
  Sex: Male

DRUGS (6)
  1. DURAGESIC [Suspect]
     Indication: PAIN
     Dosage: 100 UG/HR, ORAL
     Route: 048
     Dates: end: 20040301
  2. DURAGESIC [Suspect]
     Indication: PAIN
     Dosage: 100 UG/HR, ORAL
     Route: 048
     Dates: start: 20040301
  3. FENTANYL [Suspect]
     Indication: INDUCTION OF ANAESTHESIA
     Dosage: INTRAVENOUS
     Route: 042
     Dates: start: 20040301, end: 20040301
  4. MIDAZOLAM [Concomitant]
  5. PROPOFOL (PROPOFOL) INJECTION [Concomitant]
  6. MORPHINE (MORPHINE) INJECTION [Concomitant]

REACTIONS (8)
  - ANAESTHETIC COMPLICATION [None]
  - APALLIC SYNDROME [None]
  - BRADYCARDIA [None]
  - CLONIC CONVULSION [None]
  - DRUG LEVEL INCREASED [None]
  - INTENTIONAL MISUSE [None]
  - LOSS OF CONSCIOUSNESS [None]
  - MEDICATION ERROR [None]
